FAERS Safety Report 26107708 (Version 1)
Quarter: 2025Q4

REPORT INFORMATION
  Report Type: Other
  Country: GB (occurrence: GB)
  Receive Date: 20251201
  Receipt Date: 20251201
  Transmission Date: 20260118
  Serious: Yes (Disabling, Other)
  Sender: MACLEODS
  Company Number: None

PATIENT

DRUGS (1)
  1. ARIPIPRAZOLE [Suspect]
     Active Substance: ARIPIPRAZOLE
     Indication: Product used for unknown indication

REACTIONS (2)
  - Medication error [Unknown]
  - Restlessness [Not Recovered/Not Resolved]
